FAERS Safety Report 4720852-5 (Version None)
Quarter: 2005Q3

REPORT INFORMATION
  Report Type: 
  Country: None (occurrence: None)
  Receive Date: 20050720
  Receipt Date: 20050707
  Transmission Date: 20060218
  Serious: Yes (Hospitalization)
  Sender: FDA-Public Use
  Company Number: 2005AL002218

PATIENT
  Age: 40 Year
  Sex: Female

DRUGS (7)
  1. SERAX [Suspect]
     Indication: ANXIETY
     Dosage: PO
     Route: 048
     Dates: start: 20050109, end: 20050122
  2. SERAX [Suspect]
     Indication: ANXIETY
     Dosage: PO
     Route: 048
     Dates: start: 20050501
  3. PROZAC [Suspect]
     Indication: DEPRESSION
     Dosage: PO
     Route: 048
     Dates: start: 20050115, end: 20050121
  4. TERCIAN [Suspect]
     Indication: DEPRESSION
     Dosage: PO
     Route: 048
     Dates: start: 20050109, end: 20050121
  5. METFORMIN HCL [Concomitant]
  6. DAONIL [Concomitant]
  7. ELISOR [Concomitant]

REACTIONS (7)
  - FACE OEDEMA [None]
  - GAMMA-GLUTAMYLTRANSFERASE INCREASED [None]
  - INFLAMMATION [None]
  - LEUKOCYTOSIS [None]
  - NEUTROPHIL COUNT INCREASED [None]
  - RASH PAPULAR [None]
  - URTICARIA [None]
